FAERS Safety Report 9442124 (Version 2)
Quarter: 2014Q3

REPORT INFORMATION
  Report Type: Report from Study
  Country: JP (occurrence: JP)
  Receive Date: 20130806
  Receipt Date: 20140725
  Transmission Date: 20150326
  Serious: Yes (Life-Threatening, Hospitalization, Other)
  Sender: FDA-Public Use
  Company Number: JP-AMGEN-JPNCT2013054931

PATIENT
  Age: 79 Year
  Sex: Male
  Weight: 48 kg

DRUGS (21)
  1. PURSENNID [Concomitant]
     Active Substance: SENNOSIDES A AND B CALCIUM
     Dosage: UNK
     Route: 048
  2. WARFARIN [Concomitant]
     Active Substance: WARFARIN
     Dosage: UNK
     Route: 048
  3. CONIEL [Concomitant]
     Active Substance: BENIDIPINE HYDROCHLORIDE
     Dosage: UNK
     Route: 048
  4. HALFDIGOXIN [Concomitant]
     Active Substance: DIGOXIN
     Dosage: UNK
     Route: 048
  5. ZOSYN [Concomitant]
     Active Substance: PIPERACILLIN SODIUM\TAZOBACTAM SODIUM
     Dosage: UNK
     Route: 041
  6. FEBURIC [Concomitant]
     Active Substance: FEBUXOSTAT
     Dosage: UNK
     Route: 048
  7. AZILVA [Concomitant]
     Active Substance: AZILSARTAN KAMEDOXOMIL
     Dosage: UNK
     Route: 048
  8. FERROMIA [Concomitant]
     Active Substance: FERROUS CITRATE
     Dosage: UNK
     Route: 048
  9. DARBEPOETIN ALFA [Suspect]
     Active Substance: DARBEPOETIN ALFA
     Indication: NEPHROGENIC ANAEMIA
     Dosage: 60 MUG, QD
     Route: 058
     Dates: start: 20110613, end: 20140529
  10. LASIX [Concomitant]
     Active Substance: FUROSEMIDE
     Dosage: UNK
     Route: 048
  11. LAC-B [Concomitant]
     Active Substance: BIFIDOBACTERIUM SPP.
     Dosage: UNK
     Route: 048
  12. PREDONINE [Concomitant]
     Active Substance: PREDNISOLONE\PREDNISOLONE ACETATE\PREDNISOLONE SODIUM SUCCINATE
     Indication: NEPHRITIS
     Dosage: UNK
     Route: 048
  13. SENNA [Concomitant]
     Active Substance: SENNA LEAF\SENNOSIDES\SENNOSIDES A AND B
     Dosage: UNK
     Route: 048
  14. KLARICID [Concomitant]
     Active Substance: CLARITHROMYCIN
     Dosage: UNK
     Route: 048
  15. OLMETEC [Concomitant]
     Active Substance: OLMESARTAN MEDOXOMIL
     Dosage: UNK
     Route: 048
  16. ZYLORIC [Concomitant]
     Active Substance: ALLOPURINOL
     Dosage: UNK
     Route: 048
  17. BLOPRESS [Concomitant]
     Active Substance: CANDESARTAN CILEXETIL
     Dosage: UNK
     Route: 048
  18. GASMOTIN [Concomitant]
     Active Substance: MOSAPRIDE CITRATE
     Dosage: UNK
     Route: 048
  19. GASTER [Concomitant]
     Active Substance: FAMOTIDINE
     Dosage: UNK
     Route: 048
  20. GENINAX [Concomitant]
     Active Substance: GARENOXACIN MESYLATE
     Dosage: UNK
     Route: 048
  21. DORNER [Concomitant]
     Active Substance: BERAPROST SODIUM
     Dosage: UNK
     Route: 048

REACTIONS (13)
  - Bronchitis [Recovering/Resolving]
  - Haemorrhagic anaemia [Recovering/Resolving]
  - Bronchitis [Recovered/Resolved]
  - Enterocolitis viral [Recovered/Resolved]
  - Constipation [Recovered/Resolved]
  - Asthenia [Recovering/Resolving]
  - Renal impairment [Not Recovered/Not Resolved]
  - Pneumonia [Recovering/Resolving]
  - Bronchitis [Recovering/Resolving]
  - Epistaxis [Recovering/Resolving]
  - Fracture [Not Recovered/Not Resolved]
  - Pneumonia [Recovering/Resolving]
  - Anaemia [Recovering/Resolving]

NARRATIVE: CASE EVENT DATE: 20110714
